FAERS Safety Report 23466535 (Version 2)
Quarter: 2024Q1

REPORT INFORMATION
  Report Type: Spontaneous
  Country: NO (occurrence: NO)
  Receive Date: 20240201
  Receipt Date: 20240208
  Transmission Date: 20240410
  Serious: Yes (Death, Hospitalization, Other)
  Sender: FDA-Public Use
  Company Number: NO-SA-SAC20240131000070

PATIENT
  Age: 65 Year
  Sex: Male

DRUGS (29)
  1. DUPIXENT [Suspect]
     Active Substance: DUPILUMAB
     Indication: Asthma
     Dosage: 600 MG, 1X
     Route: 065
     Dates: start: 202210, end: 202210
  2. DUPIXENT [Suspect]
     Active Substance: DUPILUMAB
     Dosage: 300 MG, QOW
     Dates: end: 202309
  3. NUCALA [Concomitant]
     Active Substance: MEPOLIZUMAB
     Dosage: UNK
     Dates: start: 2017, end: 202210
  4. FASENRA [Concomitant]
     Active Substance: BENRALIZUMAB
     Dosage: UNK
  5. PREDNISOLONE [Concomitant]
     Active Substance: PREDNISOLONE
     Dosage: 60 MG (INN=PREDNISOLONE) 1 TABLET DAILY UNTIL 26-SEP-23,
     Dates: end: 20230926
  6. PREDNISOLONE [Concomitant]
     Active Substance: PREDNISOLONE
     Dosage: THEN 50 MG 1 TABLET DAILY UNTIL ADMISSION FOR THE COURSE, FURTHER TAPERING TO BE AGREED UPON
  7. SOLU-MEDROL [Concomitant]
     Active Substance: METHYLPREDNISOLONE SODIUM SUCCINATE
  8. WARFARIN [Concomitant]
     Active Substance: WARFARIN
     Dosage: PREVIOUSLY APPROXIMATELY 14 TABLETS PER WEEK, NOW 1 TABLET ON 16-SEP (SATURDAY), 1 TABLET ON 17-SEP
  9. RITUXIMAB [Concomitant]
     Active Substance: RITUXIMAB
     Route: 042
     Dates: start: 20230914
  10. RITUXIMAB [Concomitant]
     Active Substance: RITUXIMAB
     Dosage: UNK, READMITTED FOR RITUXIMAB TREATMENT 1B, 14 DAYS AFTER 1A.
  11. CYCLOPHOSPHAMIDE [Concomitant]
     Active Substance: CYCLOPHOSPHAMIDE
  12. BACTRIM [Concomitant]
     Active Substance: SULFAMETHOXAZOLE\TRIMETHOPRIM
     Indication: Prophylaxis
     Dosage: 1 TABLET, 3 TIMES PER WEEK (TUESDAY, THURSDAY, AND SUNDAY).
  13. BUMETANIDE [Concomitant]
     Active Substance: BUMETANIDE
     Dosage: 2 MG X 2
  14. TRESIBA [Concomitant]
     Active Substance: INSULIN DEGLUDEC
     Indication: Type 2 diabetes mellitus
     Dosage: 18 UNITS/DAY
  15. MEPOLIZUMAB [Concomitant]
     Active Substance: MEPOLIZUMAB
  16. ATACAND [Concomitant]
     Active Substance: CANDESARTAN CILEXETIL
     Dosage: 8 MG, QD, TABLET 8 MG 1X1
  17. BECLOMETHASONE DIPROPIONATE\FORMOTEROL FUMARATE\GLYCOPYRROLATE [Concomitant]
     Active Substance: BECLOMETHASONE DIPROPIONATE\FORMOTEROL FUMARATE\GLYCOPYRROLATE
     Dosage: INHALATION 2 DOSES X1
  18. CARVEDILOL [Concomitant]
     Active Substance: CARVEDILOL
     Dosage: 1X2
  19. LERCANIDIPINE HYDROCHLORIDE [Concomitant]
     Active Substance: LERCANIDIPINE HYDROCHLORIDE
     Dosage: 20 MG 1X1
  20. ESOMEPRAZOLE [Concomitant]
     Active Substance: ESOMEPRAZOLE
     Dosage: SOMAC (INN=ESOMEPRAZOLE) 40 MG 1X1
  21. LIPITOR [Concomitant]
     Active Substance: ATORVASTATIN CALCIUM
     Dosage: 40 MG 1X1 IN THE EVENING
  22. OZEMPIC [Concomitant]
     Active Substance: SEMAGLUTIDE
     Dosage: INJECTION SOLUTION 0.5 MG/0.19 ML 1X1/WEEK, ON TUESDAYS
  23. ZYRTEC [Concomitant]
     Active Substance: CETIRIZINE HYDROCHLORIDE
     Dosage: 10 MG 1X1
  24. CYANOCOBALAMIN [Concomitant]
     Active Substance: CYANOCOBALAMIN
     Dosage: 1 MG 1X1
  25. FOLIC ACID [Concomitant]
     Active Substance: FOLIC ACID
     Dosage: 1 MG 1X1
  26. VITAMIN D NOS [Concomitant]
     Active Substance: VITAMIN D NOS
     Dosage: 40 MCG 1X1
  27. NASONEX [Concomitant]
     Active Substance: MOMETASONE FUROATE
     Dosage: NASAL SPRAY 50 MICROGRAMS/DOSE 1X1
  28. MIRCERA [Concomitant]
     Active Substance: METHOXY POLYETHYLENE GLYCOL-EPOETIN BETA
     Dosage: 50 UG 1 X 1 EVERY 2 WEEKS.
  29. LACTULOSE [Concomitant]
     Active Substance: LACTULOSE
     Dosage: MIXTURE 15 ML 1 DOSE X 2

REACTIONS (19)
  - Pulmonary embolism [Fatal]
  - Respiratory failure [Fatal]
  - Renal failure [Fatal]
  - Eosinophilic granulomatosis with polyangiitis [Fatal]
  - Cardiac arrest [Fatal]
  - Pulmonary vasculitis [Unknown]
  - Hypereosinophilic syndrome [Unknown]
  - Mitral valve stenosis [Unknown]
  - Myocardial infarction [Unknown]
  - Vasculitis necrotising [Unknown]
  - Skin ulcer [Unknown]
  - Blood glucose increased [Unknown]
  - Cardiac murmur [Unknown]
  - Urinary casts [Unknown]
  - Oedema mucosal [Unknown]
  - Fibrosis [Unknown]
  - Left ventricular hypertrophy [Unknown]
  - Pain in extremity [Unknown]
  - Eosinophilia [Unknown]

NARRATIVE: CASE EVENT DATE: 20230101
